FAERS Safety Report 18191223 (Version 1)
Quarter: 2020Q3

REPORT INFORMATION
  Report Type: Spontaneous
  Country: GB (occurrence: CN)
  Receive Date: 20200825
  Receipt Date: 20200825
  Transmission Date: 20201103
  Serious: Yes (Other)
  Sender: FDA-Public Use
  Company Number: CN-ASTELLAS-2020US027853

PATIENT
  Age: 63 Year
  Sex: Female

DRUGS (2)
  1. ALECTINIB. [Concomitant]
     Active Substance: ALECTINIB
     Indication: LUNG NEOPLASM MALIGNANT
     Dosage: UNK UNK, UNKNOWN FREQ.
     Route: 048
     Dates: start: 20200806
  2. ERLOTINIB [Suspect]
     Active Substance: ERLOTINIB
     Indication: LUNG NEOPLASM MALIGNANT
     Dosage: UNK, UNKNOWN FREQ.
     Route: 048
     Dates: start: 20200806

REACTIONS (2)
  - Rash [Unknown]
  - Thrombosis [Unknown]
